FAERS Safety Report 4859880-8 (Version None)
Quarter: 2005Q4

REPORT INFORMATION
  Report Type: 
  Country: None (occurrence: None)
  Receive Date: 20051215
  Receipt Date: 20051212
  Transmission Date: 20060501
  Serious: Yes (Hospitalization)
  Sender: FDA-Public Use
  Company Number: 200510528BYL

PATIENT
  Age: 67 Year
  Sex: Male
  Weight: 82 kg

DRUGS (5)
  1. GLUCOBAY [Suspect]
     Indication: DIABETES MELLITUS NON-INSULIN-DEPENDENT
     Dosage: 100 MG, TOTAL, TID, ORAL
     Route: 048
     Dates: start: 20051006, end: 20051023
  2. KERLONG [Concomitant]
  3. BLOPRESS [Concomitant]
  4. MELBIN [Concomitant]
  5. AMLODIPINE BESYLATE [Concomitant]

REACTIONS (15)
  - AORTIC DILATATION [None]
  - BLOOD CREATINE PHOSPHOKINASE INCREASED [None]
  - BLOOD CREATINE PHOSPHOKINASE MB INCREASED [None]
  - BLOOD PRESSURE INCREASED [None]
  - CONTRAST MEDIA REACTION [None]
  - CORONARY ARTERY STENOSIS [None]
  - DILATATION VENTRICULAR [None]
  - DRUG HYPERSENSITIVITY [None]
  - DYSPNOEA [None]
  - HAEMATEMESIS [None]
  - HEPATIC ENZYME INCREASED [None]
  - HEPATIC FUNCTION ABNORMAL [None]
  - MALAISE [None]
  - MITRAL VALVE INCOMPETENCE [None]
  - VENTRICULAR DYSFUNCTION [None]
